FAERS Safety Report 8148650 (Version 2)
Quarter: 2013Q2

REPORT INFORMATION
  Report Type: Spontaneous
  Country: US (occurrence: US)
  Receive Date: 20110922
  Receipt Date: 20130422
  Transmission Date: 20140414
  Serious: Yes (Other)
  Sender: FDA-Public Use
  Company Number: US-ASTRAZENECA-2011SE12624

PATIENT
  Age: 43 Year
  Sex: Male

DRUGS (4)
  1. SEROQUEL [Suspect]
     Dosage: 50 MG 1 TABLET BY MOUTH DAILY AND 100 MG 1 TABLET AT BEDTIME DAILY
     Route: 048
     Dates: start: 20090925
  2. METOPROLOL TARTRATE [Concomitant]
     Route: 048
     Dates: start: 20090923
  3. LISINOPRIL [Concomitant]
     Route: 048
     Dates: start: 20090923
  4. SIMVASTATIN [Concomitant]
     Dates: start: 20090923

REACTIONS (3)
  - Pancreatitis [Unknown]
  - Diabetic coma [Unknown]
  - Type 2 diabetes mellitus [Unknown]
